FAERS Safety Report 10956031 (Version 1)
Quarter: 2015Q1

REPORT INFORMATION
  Report Type: Spontaneous
  Country: US (occurrence: None)
  Receive Date: 20150226
  Receipt Date: 20150226
  Transmission Date: 20150721
  Serious: Yes (Other)
  Sender: FDA-Public Use
  Company Number: TPA2013A00805

PATIENT
  Age: 59 Year
  Sex: Male
  Weight: 78.47 kg

DRUGS (5)
  1. AVANDIA (ROSIGLITAZONE MALEATE) [Concomitant]
  2. ACTOPLUS MET [Suspect]
     Active Substance: METFORMIN HYDROCHLORIDE\PIOGLITAZONE HYDROCHLORIDE
     Indication: TYPE 2 DIABETES MELLITUS
     Dates: start: 20060802, end: 20110605
  3. DIABETA [Concomitant]
     Active Substance: GLYBURIDE
  4. METFORMIN [Concomitant]
     Active Substance: METFORMIN HYDROCHLORIDE
  5. NOVOLIN (INSULIN HUMAN, INSULIN HUMAN INJECTION, ISOPANE) [Concomitant]

REACTIONS (1)
  - Bladder cancer recurrent [None]

NARRATIVE: CASE EVENT DATE: 20071128
